FAERS Safety Report 9255342 (Version 1)
Quarter: 2013Q1

REPORT INFORMATION
  Report Type: Spontaneous
  Country: US (occurrence: None)
  Receive Date: 20121203
  Receipt Date: 20121203
  Transmission Date: 20140127
  Serious: Yes (Hospitalization, Other)
  Sender: FDA-Public Use
  Company Number: 2012SP035096

PATIENT
  Age: 33 Year
  Sex: Female
  Weight: 58.97 kg

DRUGS (2)
  1. NUVARING (ETONOGESTREL (+) ETHINYL ESTRADIOL) VAGINAL RING [Suspect]
     Indication: CONTRACEPTION
  2. MAXALT (RIZATRIPTAN BENZOATE) [Concomitant]

REACTIONS (12)
  - Pulmonary embolism [None]
  - Mitral valve incompetence [None]
  - Ectropion of cervix [None]
  - Menorrhagia [None]
  - Gastrointestinal disorder [None]
  - Abdominal pain lower [None]
  - Haemorrhoids [None]
  - Appendicectomy [None]
  - Genital herpes [None]
  - Rosacea [None]
  - Pregnancy [None]
  - Gastrooesophageal reflux disease [None]
